FAERS Safety Report 7407462-6 (Version None)
Quarter: 2011Q2

REPORT INFORMATION
  Report Type: 
  Country: None (occurrence: None)
  Receive Date: 20110411
  Receipt Date: 20110330
  Transmission Date: 20111010
  Serious: Yes (Other)
  Sender: FDA-Public Use
  Company Number: US-BAYER-2011-028486

PATIENT
  Age: 47 Year
  Sex: Male

DRUGS (4)
  1. AVELOX [Suspect]
     Indication: BRONCHITIS
     Dosage: 400 MG, QD
     Route: 048
     Dates: start: 20110301, end: 20110330
  2. CODEINE [Interacting]
  3. AVELOX [Interacting]
     Indication: UPPER RESPIRATORY TRACT INFECTION
  4. MUCINEX [Interacting]

REACTIONS (3)
  - BLOOD PRESSURE INCREASED [None]
  - PALPITATIONS [None]
  - TREMOR [None]
